FAERS Safety Report 7589319-3 (Version None)
Quarter: 2011Q3

REPORT INFORMATION
  Report Type: 
  Country: None (occurrence: None)
  Receive Date: 20110705
  Receipt Date: 20110624
  Transmission Date: 20111222
  Serious: Yes (Hospitalization, Other)
  Sender: FDA-Public Use
  Company Number: US-BAYER-2011-056662

PATIENT
  Age: 28 Year
  Sex: Female
  Weight: 83.9 kg

DRUGS (8)
  1. SERTRALINE HYDROCHLORIDE [Concomitant]
     Dosage: UNK
     Dates: start: 20090101
  2. YASMIN [Suspect]
     Indication: CONTRACEPTION
     Dosage: UNK
     Dates: start: 20070101, end: 20090101
  3. YAZ [Suspect]
     Indication: CONTRACEPTION
     Dosage: UNK
     Dates: start: 20070101, end: 20090101
  4. YAZ [Suspect]
     Indication: PREMENSTRUAL SYNDROME
  5. YASMIN [Suspect]
     Indication: PREMENSTRUAL SYNDROME
  6. IBUPROFEN [Concomitant]
     Dosage: UNK
     Dates: start: 20040101
  7. DIURETICS [Concomitant]
     Dosage: UNK
     Dates: start: 20040101
  8. ASCORBIC ACID [Concomitant]
     Dosage: UNK
     Dates: start: 20040101

REACTIONS (5)
  - BILIARY DYSKINESIA [None]
  - VOMITING [None]
  - PAIN [None]
  - CHOLECYSTITIS [None]
  - CHOLECYSTECTOMY [None]
